FAERS Safety Report 4885292-7 (Version None)
Quarter: 2006Q1

REPORT INFORMATION
  Report Type: 
  Country: None (occurrence: None)
  Receive Date: 20060119
  Receipt Date: 20051018
  Transmission Date: 20060701
  Serious: Yes (Hospitalization)
  Sender: FDA-Public Use
  Company Number: PHRM2005FR02773

PATIENT
  Age: 5 Year
  Sex: Male
  Weight: 22 kg

DRUGS (10)
  1. NEORAL [Suspect]
     Indication: RENAL TRANSPLANT
     Dosage: 1.1 ML, BID
     Route: 048
     Dates: start: 20020801, end: 20051017
  2. NEORAL [Suspect]
     Dosage: 11 ML, BID
     Route: 048
     Dates: start: 20051017, end: 20051018
  3. NEORAL [Suspect]
  4. CORTANCYL [Concomitant]
     Indication: RENAL TRANSPLANT
  5. IMUREL [Concomitant]
     Indication: RENAL TRANSPLANT
  6. UN-ALFA [Concomitant]
  7. TARDYFERON [Concomitant]
  8. CALCIDOSE [Concomitant]
  9. LAMICTAL [Concomitant]
  10. ZARONTIN [Concomitant]

REACTIONS (6)
  - ACCIDENTAL OVERDOSE [None]
  - BLOOD CREATININE INCREASED [None]
  - FATIGUE [None]
  - INCORRECT DOSE ADMINISTERED [None]
  - MALAISE [None]
  - URINE FLOW DECREASED [None]
